FAERS Safety Report 7788486-6 (Version None)
Quarter: 2011Q3

REPORT INFORMATION
  Report Type: 
  Country: None (occurrence: None)
  Receive Date: 20110930
  Receipt Date: 20110920
  Transmission Date: 20111222
  Serious: Yes (Other)
  Sender: FDA-Public Use
  Company Number: GB-JNJFOC-20110907596

PATIENT
  Age: 21 Year
  Sex: Female

DRUGS (3)
  1. CETIRIZINE HCL [Suspect]
     Indication: HYPERSENSITIVITY
     Route: 048
     Dates: start: 20061116, end: 20110501
  2. CETIRIZINE HCL [Suspect]
     Indication: SWELLING
     Route: 048
     Dates: start: 20061116, end: 20110501
  3. LAMICTAL [Concomitant]
     Indication: PRODUCT USED FOR UNKNOWN INDICATION
     Route: 065

REACTIONS (2)
  - EPILEPSY [None]
  - OFF LABEL USE [None]
